FAERS Safety Report 19138746 (Version 1)
Quarter: 2021Q2

REPORT INFORMATION
  Report Type: Spontaneous
  Country: US (occurrence: US)
  Receive Date: 20210415
  Receipt Date: 20210415
  Transmission Date: 20210717
  Serious: No
  Sender: FDA-Public Use
  Company Number: US-009507513-2103USA008192

PATIENT
  Age: 71 Year
  Sex: Male

DRUGS (6)
  1. ISAVUCONAZONIUM [Concomitant]
     Active Substance: ISAVUCONAZONIUM
     Indication: CUTANEOUS MUCORMYCOSIS
     Dosage: UNK
  2. AMPHOTERICIN B. [Concomitant]
     Active Substance: AMPHOTERICIN B
     Indication: CUTANEOUS MUCORMYCOSIS
     Dosage: 430 MILLIGRAM, QD, 5 MG/KG
  3. AMPHOTERICIN B. [Concomitant]
     Active Substance: AMPHOTERICIN B
     Indication: CUTANEOUS MUCORMYCOSIS
     Dosage: TWICE DAILY
  4. PIPERACILLIN AND TAZOBACTAM [Concomitant]
     Active Substance: PIPERACILLIN SODIUM\TAZOBACTAM SODIUM
     Indication: CUTANEOUS MUCORMYCOSIS
  5. DAPTOMYCIN. [Concomitant]
     Active Substance: DAPTOMYCIN
     Indication: CUTANEOUS MUCORMYCOSIS
  6. NOXAFIL [Suspect]
     Active Substance: POSACONAZOLE
     Indication: CUTANEOUS MUCORMYCOSIS
     Dosage: UNK
     Route: 048

REACTIONS (1)
  - Off label use [Unknown]
